FAERS Safety Report 8133203-3 (Version None)
Quarter: 2012Q1

REPORT INFORMATION
  Report Type: 
  Country: None (occurrence: None)
  Receive Date: 20120213
  Receipt Date: 20120208
  Transmission Date: 20120608
  Serious: Yes (Other)
  Sender: FDA-Public Use
  Company Number: PHHY2012PE004544

PATIENT
  Sex: Female

DRUGS (2)
  1. ASPIRIN [Concomitant]
     Dosage: UNK UKN, UNK
  2. EXFORGE [Suspect]
     Indication: HYPERTENSION
     Dosage: 160/10 MG DAILY
     Dates: start: 20110224

REACTIONS (8)
  - DYSGEUSIA [None]
  - CHOKING [None]
  - FEELING HOT [None]
  - HEPATITIS [None]
  - BLOOD CHOLESTEROL INCREASED [None]
  - DIZZINESS [None]
  - RENAL CYST [None]
  - HEPATIC CYST [None]
